FAERS Safety Report 9822012 (Version 1)
Quarter: 2014Q1

REPORT INFORMATION
  Report Type: Spontaneous
  Country: IT (occurrence: None)
  Receive Date: 20140115
  Receipt Date: 20140115
  Transmission Date: 20141002
  Serious: Yes (Other)
  Sender: FDA-Public Use
  Company Number: 2115101

PATIENT
  Age: 51 Year
  Sex: Male

DRUGS (4)
  1. (GEMCITABINE HYDROCHLORIDE) [Suspect]
     Indication: LUNG NEOPLASM MALIGNANT
     Dosage: CYCLICAL
     Route: 042
     Dates: start: 20130919, end: 20131119
  2. (CARBOPLATIN) [Suspect]
     Indication: LUNG NEOPLASM MALIGNANT
     Dosage: CYCLICAL
     Route: 042
     Dates: start: 20130914, end: 20131119
  3. (SOLDESAM) [Concomitant]
  4. (IPERTEN) [Concomitant]

REACTIONS (1)
  - Mucosal inflammation [None]
